FAERS Safety Report 8369064-7 (Version None)
Quarter: 2012Q2

REPORT INFORMATION
  Report Type: 
  Country: None (occurrence: None)
  Receive Date: 20120518
  Receipt Date: 20120514
  Transmission Date: 20120825
  Serious: Yes (Hospitalization)
  Sender: FDA-Public Use
  Company Number: US-BAYER-2012-018055

PATIENT
  Age: 33 Year
  Sex: Female
  Weight: 86 kg

DRUGS (10)
  1. YAZ [Suspect]
     Indication: CONTRACEPTION
     Dosage: UNK
     Dates: start: 20100223
  2. DROSPIRENONE AND ETHINYL ESTRADIOL [Suspect]
     Indication: ACNE
  3. MOTRIN [Concomitant]
  4. YASMIN [Suspect]
     Indication: CONTRACEPTION
     Dosage: UNK
     Dates: start: 20050328, end: 20070331
  5. IBUPROFEN [Concomitant]
  6. YAZ [Suspect]
     Indication: ACNE
     Dosage: UNK
     Route: 048
     Dates: start: 20090226, end: 20090815
  7. CEPHALEXIN [Concomitant]
  8. YASMIN [Suspect]
     Indication: ACNE
  9. DROSPIRENONE AND ETHINYL ESTRADIOL [Suspect]
     Indication: CONTRACEPTION
     Dosage: UNK
     Dates: start: 20090815, end: 20100223
  10. MUPIROCIN [Concomitant]

REACTIONS (2)
  - CHOLECYSTITIS ACUTE [None]
  - GALLBLADDER DISORDER [None]
